FAERS Safety Report 10361680 (Version 3)
Quarter: 2014Q3

REPORT INFORMATION
  Report Type: Spontaneous
  Country: FR (occurrence: FR)
  Receive Date: 20140805
  Receipt Date: 20140807
  Transmission Date: 20150326
  Serious: Yes (Other)
  Sender: FDA-Public Use
  Company Number: FR-PFIZER INC-2014134529

PATIENT
  Age: 75 Year
  Sex: Male

DRUGS (10)
  1. LYRICA [Suspect]
     Active Substance: PREGABALIN
     Indication: EPILEPSY
     Dosage: 150 MG, 2X/DAY
     Dates: start: 201312, end: 20140514
  2. PRAVASTATIN [Concomitant]
     Active Substance: PRAVASTATIN\PRAVASTATIN SODIUM
  3. LAMICTAL [Suspect]
     Active Substance: LAMOTRIGINE
     Indication: EPILEPSY
     Dosage: 300 MG, DAILY
  4. KARDEGIC [Concomitant]
     Active Substance: ASPIRIN LYSINE
  5. LAMICTAL [Suspect]
     Active Substance: LAMOTRIGINE
     Indication: ABNORMAL BEHAVIOUR
     Dosage: 200 MG, 2X/DAY
  6. LAMICTAL [Suspect]
     Active Substance: LAMOTRIGINE
     Dosage: 200 MG, 1X/DAY IN THE EVENING
  7. LYRICA [Suspect]
     Active Substance: PREGABALIN
     Indication: ABNORMAL BEHAVIOUR
  8. FLUDEX [Concomitant]
     Active Substance: INDAPAMIDE
  9. PREVISCAN [Concomitant]
     Active Substance: FLUINDIONE
  10. CANDESARTAN [Concomitant]
     Active Substance: CANDESARTAN

REACTIONS (6)
  - Aggression [Unknown]
  - Anxiety [Unknown]
  - Suicide attempt [Unknown]
  - Abnormal behaviour [Unknown]
  - Partial seizures [Unknown]
  - Confusional state [Unknown]

NARRATIVE: CASE EVENT DATE: 2014
